FAERS Safety Report 11067595 (Version 3)
Quarter: 2015Q4

REPORT INFORMATION
  Report Type: Spontaneous
  Country: GB (occurrence: GB)
  Receive Date: 20150427
  Receipt Date: 20151013
  Transmission Date: 20160304
  Serious: Yes (Death)
  Sender: FDA-Public Use
  Company Number: GB-ACCORD-030274

PATIENT
  Age: 37 Year
  Sex: Male

DRUGS (10)
  1. AMITRIPTYLINE [Suspect]
     Active Substance: AMITRIPTYLINE
     Dosage: RECEIVED OVERDOSE
  2. DIAZEPAM. [Suspect]
     Active Substance: DIAZEPAM
     Dosage: RECEIVED OVERDOSE
  3. GABAPENTIN. [Suspect]
     Active Substance: GABAPENTIN
     Dosage: RECEIVED OVERDOSE
  4. NAPROXEN. [Concomitant]
     Active Substance: NAPROXEN
  5. PARACETAMOL [Suspect]
     Active Substance: ACETAMINOPHEN
     Dosage: RECEIVED OVERDOSE
  6. NEFOPAM [Suspect]
     Active Substance: NEFOPAM
     Dosage: RECEIVED OVERDOSE
  7. OMEPRAZOLE. [Concomitant]
     Active Substance: OMEPRAZOLE
  8. NICOTINE. [Suspect]
     Active Substance: NICOTINE
     Dosage: RECEIVED OVERDOSE
  9. CITALOPRAM [Suspect]
     Active Substance: CITALOPRAM HYDROBROMIDE
     Dosage: RECEIVED OVERDOSE
  10. CAFFEINE/CAFFEINE CITRATE [Suspect]
     Active Substance: CAFFEINE CITRATE
     Dosage: RECEIVED OVERDOSE

REACTIONS (3)
  - Arteriosclerosis coronary artery [Fatal]
  - Overdose [Fatal]
  - Toxicity to various agents [Fatal]
